FAERS Safety Report 8831781 (Version 1)
Quarter: 2012Q4

REPORT INFORMATION
  Report Type: 
  Country: US (occurrence: US)
  Receive Date: 20121009
  Receipt Date: 20121009
  Transmission Date: 20130627
  Serious: Yes (Death)
  Sender: FDA-Public Use
  Company Number: US-ROCHE-1142946

PATIENT
  Age: 65 Year
  Sex: Male

DRUGS (1)
  1. RITUXAN [Suspect]
     Indication: CHRONIC LYMPHOCYTIC LEUKAEMIA
     Route: 065
     Dates: start: 19991230, end: 20000103

REACTIONS (6)
  - Death [Fatal]
  - Fatigue [Unknown]
  - Pyrexia [Unknown]
  - Respiratory tract infection [Unknown]
  - Cough [Unknown]
  - Dizziness [Unknown]
